FAERS Safety Report 7769223-8 (Version None)
Quarter: 2011Q3

REPORT INFORMATION
  Report Type: 
  Country: None (occurrence: None)
  Receive Date: 20110922
  Receipt Date: 20110914
  Transmission Date: 20111222
  Serious: Yes (Death)
  Sender: FDA-Public Use
  Company Number: GB-MPIJNJ-2011-02997

PATIENT

DRUGS (3)
  1. VELCADE [Suspect]
     Indication: MULTIPLE MYELOMA
     Dosage: 1 MG, CYCLIC
     Route: 058
     Dates: start: 20110321, end: 20110415
  2. VELCADE [Suspect]
     Dosage: 2.6 MG, CYCLIC
     Route: 058
  3. VELCADE [Suspect]
     Dosage: 1 UNK, UNK
     Route: 058
     Dates: start: 20110321, end: 20110415

REACTIONS (3)
  - DRUG INEFFECTIVE [None]
  - INTESTINAL ISCHAEMIA [None]
  - OFF LABEL USE [None]
